FAERS Safety Report 5066991-3 (Version None)
Quarter: 2006Q3

REPORT INFORMATION
  Report Type: 
  Country: None (occurrence: None)
  Receive Date: 20060728
  Receipt Date: 20060714
  Transmission Date: 20061208
  Serious: Yes (Other)
  Sender: FDA-Public Use
  Company Number: USA-2006-0024640

PATIENT
  Age: 77 Year
  Sex: Female

DRUGS (8)
  1. MORPHINE SULFATE [Suspect]
     Indication: DYSPNOEA
     Dosage: SEE IMAGE
     Route: 060
  2. FUROSEMIDE [Concomitant]
  3. DIGOXIN [Concomitant]
  4. METOLAZONE [Concomitant]
  5. POTASSIUM (POTASSIUM) [Concomitant]
  6. SPIRONOLACTONE [Concomitant]
  7. WARFARIN SODIUM [Concomitant]
  8. OXYGEN (OXYGEN) [Concomitant]

REACTIONS (16)
  - ACUTE PULMONARY OEDEMA [None]
  - ANXIETY [None]
  - CONFUSIONAL STATE [None]
  - DELIRIUM [None]
  - DELUSION [None]
  - DELUSION OF REPLACEMENT [None]
  - DEPRESSED MOOD [None]
  - FEAR [None]
  - INSOMNIA [None]
  - PARANOIA [None]
  - PSYCHOTIC DISORDER [None]
  - REFUSAL OF EXAMINATION [None]
  - RESTLESSNESS [None]
  - SEDATION [None]
  - SUSPICIOUSNESS [None]
  - TEARFULNESS [None]
